FAERS Safety Report 12315851 (Version 3)
Quarter: 2016Q2

REPORT INFORMATION
  Report Type: Report from Study
  Country: TW (occurrence: TW)
  Receive Date: 20160428
  Receipt Date: 20160506
  Transmission Date: 20160815
  Serious: Yes (Death)
  Sender: FDA-Public Use
  Company Number: TW-ABBVIE-16K-153-1614063-00

PATIENT
  Age: 57 Year
  Sex: Female

DRUGS (15)
  1. FOLIC ACID. [Concomitant]
     Active Substance: FOLIC ACID
     Indication: RHEUMATOID ARTHRITIS
     Dosage: 1#
     Route: 048
     Dates: start: 20160415
  2. LONITEN [Concomitant]
     Active Substance: MINOXIDIL
     Indication: HYPERTENSION
     Route: 048
     Dates: start: 20160308
  3. CARBONATE DE LITHIUM VIFOR [Concomitant]
     Indication: HYPERTENSION
     Dosage: 1#
     Route: 048
     Dates: start: 20160308
  4. AMLODIPINE [Concomitant]
     Active Substance: AMLODIPINE BESYLATE
     Indication: HYPERTENSION
     Dosage: 1#
     Route: 048
     Dates: start: 20160308
  5. HUMIRA [Suspect]
     Active Substance: ADALIMUMAB
     Indication: RHEUMATOID ARTHRITIS
     Route: 058
     Dates: start: 20160415
  6. NITROGLYCERIN. [Concomitant]
     Active Substance: NITROGLYCERIN
     Indication: CORONARY ARTERY DISEASE
     Dosage: 1#
     Route: 048
     Dates: start: 20160308, end: 20160314
  7. BOKEY [Concomitant]
     Indication: CORONARY ARTERY DISEASE
     Dosage: 1#
     Route: 048
     Dates: start: 20160308
  8. METFORMIN [Concomitant]
     Active Substance: METFORMIN HYDROCHLORIDE
     Indication: DIABETES MELLITUS
     Dosage: 1#
     Route: 048
     Dates: start: 20160308
  9. RIVOTRIL [Concomitant]
     Active Substance: CLONAZEPAM
     Indication: RHEUMATOID ARTHRITIS
     Dosage: 1#
     Route: 048
     Dates: start: 20160415
  10. MOBIC [Concomitant]
     Active Substance: MELOXICAM
     Indication: RHEUMATOID ARTHRITIS
     Dosage: 1#
     Dates: start: 20160415
  11. LIPITOR [Concomitant]
     Active Substance: ATORVASTATIN CALCIUM
     Indication: HYPERLIPIDAEMIA
     Dosage: 0.5#
     Route: 048
     Dates: start: 20160308
  12. AMARYL [Concomitant]
     Active Substance: GLIMEPIRIDE
     Indication: DIABETES MELLITUS
     Dosage: 1#
     Route: 048
     Dates: start: 20160308
  13. METHOTREXATE [Concomitant]
     Active Substance: METHOTREXATE
     Indication: RHEUMATOID ARTHRITIS
     Dosage: 1#
     Route: 048
     Dates: start: 20160415
  14. CONCOR [Concomitant]
     Active Substance: BISOPROLOL FUMARATE
     Indication: CORONARY ARTERY DISEASE
     Dosage: 1#
     Route: 048
     Dates: start: 20160308
  15. CALCIUM [Concomitant]
     Active Substance: CALCIUM
     Indication: HYPERTENSION
     Dosage: 1#
     Route: 048
     Dates: start: 20160308

REACTIONS (1)
  - Acute myocardial infarction [Fatal]

NARRATIVE: CASE EVENT DATE: 201604
